FAERS Safety Report 23520436 (Version 1)
Quarter: 2024Q1

REPORT INFORMATION
  Report Type: Spontaneous
  Country: NZ (occurrence: NZ)
  Receive Date: 20240214
  Receipt Date: 20240214
  Transmission Date: 20240410
  Serious: Yes (Death, Hospitalization)
  Sender: FDA-Public Use
  Company Number: NZ-BoehringerIngelheim-2024-BI-007659

PATIENT
  Sex: Male

DRUGS (2)
  1. PRADAXA [Suspect]
     Active Substance: DABIGATRAN ETEXILATE MESYLATE
     Indication: Product used for unknown indication
  2. PAXLOVID [Suspect]
     Active Substance: NIRMATRELVIR\RITONAVIR
     Indication: Product used for unknown indication

REACTIONS (12)
  - General physical health deterioration [Fatal]
  - Arthralgia [Recovering/Resolving]
  - Tendon calcification [Recovering/Resolving]
  - Bone disorder [Recovering/Resolving]
  - Thrombosis [Unknown]
  - Productive cough [Unknown]
  - Fall [Unknown]
  - Hypotension [Recovering/Resolving]
  - Haemorrhage [Recovered/Resolved]
  - COVID-19 [Unknown]
  - Pain [Unknown]
  - Drug interaction [Unknown]

NARRATIVE: CASE EVENT DATE: 20230101
